FAERS Safety Report 6102377-8 (Version None)
Quarter: 2009Q1

REPORT INFORMATION
  Report Type: 
  Country: None (occurrence: None)
  Receive Date: 20090304
  Receipt Date: 20090221
  Transmission Date: 20090719
  Serious: Yes (Other)
  Sender: FDA-Public Use
  Company Number: BR-ROCHE-615808

PATIENT
  Sex: Male

DRUGS (2)
  1. ROACUTAN [Suspect]
     Indication: ACNE
     Route: 048
     Dates: start: 20080601, end: 20081101
  2. ALBUMIN (HUMAN) [Suspect]
     Indication: UNEVALUABLE EVENT
     Route: 065
     Dates: start: 20081201

REACTIONS (4)
  - ACNE [None]
  - ERYTHEMA [None]
  - RENAL TRANSPLANT [None]
  - SCAR [None]
